FAERS Safety Report 22076506 (Version 1)
Quarter: 2023Q1

REPORT INFORMATION
  Report Type: Spontaneous
  Country: US (occurrence: US)
  Receive Date: 20230309
  Receipt Date: 20230309
  Transmission Date: 20230418
  Serious: No
  Sender: FDA-Public Use
  Company Number: US-STERISCIENCE B.V.-2022-ST-000306

PATIENT
  Age: 39 Year
  Sex: Female

DRUGS (7)
  1. LABETALOL [Suspect]
     Active Substance: LABETALOL\LABETALOL HYDROCHLORIDE
     Indication: Pre-eclampsia
     Dosage: UNK
  2. EMPAGLIFLOZIN [Suspect]
     Active Substance: EMPAGLIFLOZIN
     Indication: Type 2 diabetes mellitus
     Dosage: UNK
  3. DEXTROSE [Suspect]
     Active Substance: DEXTROSE
     Indication: Euglycaemic diabetic ketoacidosis
     Dosage: UNK
     Route: 042
  4. INSULIN NOS [Suspect]
     Active Substance: INSULIN NOS
     Indication: Type 2 diabetes mellitus
     Dosage: UNK
  5. INSULIN NOS [Suspect]
     Active Substance: INSULIN NOS
     Indication: Euglycaemic diabetic ketoacidosis
  6. MAGNESIUM [Suspect]
     Active Substance: MAGNESIUM
     Indication: Pre-eclampsia
     Dosage: UNK, HIGH DOSE
  7. METFORMIN [Suspect]
     Active Substance: METFORMIN HYDROCHLORIDE
     Indication: Type 2 diabetes mellitus
     Dosage: UNK

REACTIONS (2)
  - Maternal exposure during pregnancy [Unknown]
  - Off label use [Unknown]
